FAERS Safety Report 25877687 (Version 6)
Quarter: 2025Q4

REPORT INFORMATION
  Report Type: Spontaneous
  Country: GB (occurrence: GB)
  Receive Date: 20251003
  Receipt Date: 20251205
  Transmission Date: 20260118
  Serious: Yes (Other)
  Sender: SANDOZ
  Company Number: GB-002147023-PHHY2016GB040428

PATIENT
  Sex: Female
  Weight: 6.9 kg

DRUGS (28)
  1. ALEMTUZUMAB [Suspect]
     Active Substance: ALEMTUZUMAB
     Indication: Bone marrow conditioning regimen
     Dosage: 0.3 MILLIGRAM/KILOGRAM
     Route: 065
     Dates: start: 2013, end: 2013
  2. ALEMTUZUMAB [Suspect]
     Active Substance: ALEMTUZUMAB
     Indication: Bone marrow conditioning regimen
     Dosage: 1 MILLIGRAM/KILOGRAM
     Route: 065
     Dates: start: 2014, end: 2014
  3. ALEMTUZUMAB [Suspect]
     Active Substance: ALEMTUZUMAB
     Indication: Cord blood transplant therapy
     Dosage: 0.3 MG/KG
     Route: 065
     Dates: start: 2013, end: 2013
  4. CYCLOSPORINE [Suspect]
     Active Substance: CYCLOSPORINE
     Dosage: 2 MILLIGRAM/KILOGRAM
     Route: 065
  5. CYCLOSPORINE [Suspect]
     Active Substance: CYCLOSPORINE
     Indication: Prophylaxis against graft versus host disease
     Dosage: 2 MG/KG
     Route: 065
     Dates: start: 2012
  6. CYCLOSPORINE [Suspect]
     Active Substance: CYCLOSPORINE
     Indication: Cord blood transplant therapy
     Dosage: 2.5 MG/KG, BID
     Route: 042
     Dates: start: 20120923, end: 201304
  7. FLUDARABINE PHOSPHATE [Suspect]
     Active Substance: FLUDARABINE PHOSPHATE
     Indication: Bone marrow conditioning regimen
     Dosage: 150 MILLIGRAM/SQ. METER
     Route: 065
     Dates: start: 2013, end: 2013
  8. FLUDARABINE PHOSPHATE [Suspect]
     Active Substance: FLUDARABINE PHOSPHATE
     Dosage: 150 MILLIGRAM/SQ. METER
     Route: 065
     Dates: start: 2014, end: 2014
  9. INFLIXIMAB [Suspect]
     Active Substance: INFLIXIMAB
     Indication: Graft versus host disease
     Dosage: UNK
     Route: 065
  10. INFLIXIMAB [Suspect]
     Active Substance: INFLIXIMAB
     Indication: Product used for unknown indication
  11. MYCOPHENOLATE MOFETIL [Suspect]
     Active Substance: MYCOPHENOLATE MOFETIL
     Indication: Cord blood transplant therapy
     Dosage: UNK
     Route: 065
     Dates: start: 2012
  12. MYCOPHENOLATE MOFETIL [Suspect]
     Active Substance: MYCOPHENOLATE MOFETIL
     Indication: Prophylaxis against graft versus host disease
  13. METHYLPREDNISOLONE [Suspect]
     Active Substance: METHYLPREDNISOLONE
     Indication: Product used for unknown indication
     Dosage: 2 MILLIGRAM/KILOGRAM
     Route: 065
  14. METHYLPREDNISOLONE [Suspect]
     Active Substance: METHYLPREDNISOLONE
     Indication: Graft versus host disease
     Dosage: UNK
     Route: 065
  15. TREOSULFAN [Suspect]
     Active Substance: TREOSULFAN
     Indication: Product used for unknown indication
     Dosage: 36 GRAM PER SQUARE METRE
     Route: 065
     Dates: start: 2013, end: 2013
  16. TREOSULFAN [Suspect]
     Active Substance: TREOSULFAN
     Indication: Bone marrow conditioning regimen
     Dosage: 36 GRAM PER SQUARE METRE
     Route: 065
     Dates: start: 2014, end: 2014
  17. CIDOFOVIR [Concomitant]
     Active Substance: CIDOFOVIR
     Indication: Product used for unknown indication
     Dosage: UNK
     Route: 065
  18. CIDOFOVIR [Concomitant]
     Active Substance: CIDOFOVIR
     Indication: Product used for unknown indication
     Dosage: UNK
     Route: 065
  19. FLUDARABINE [Concomitant]
     Active Substance: FLUDARABINE PHOSPHATE
     Indication: Cord blood transplant therapy
     Dosage: 150 MG/M2, UNK
     Route: 065
  20. FLUDARABINE [Concomitant]
     Active Substance: FLUDARABINE PHOSPHATE
     Indication: Bone marrow conditioning regimen
  21. TACROLIMUS [Concomitant]
     Active Substance: TACROLIMUS
     Dosage: UNK
     Route: 065
  22. TACROLIMUS [Concomitant]
     Active Substance: TACROLIMUS
     Indication: Prophylaxis against graft versus host disease
     Dosage: UNK
     Route: 065
  23. THIOTEPA [Concomitant]
     Active Substance: THIOTEPA
     Dosage: 15 MILLIGRAM/KILOGRAM
     Route: 065
  24. THIOTEPA [Concomitant]
     Active Substance: THIOTEPA
     Indication: Product used for unknown indication
     Dosage: 15 MG/KG
     Route: 065
  25. THYMOGLOBULIN [Concomitant]
     Active Substance: LAPINE T-LYMPHOCYTE IMMUNE GLOBULIN
     Indication: Product used for unknown indication
     Dosage: 25 MILLIGRAM/KILOGRAM
     Route: 065
  26. THYMOGLOBULIN [Concomitant]
     Active Substance: LAPINE T-LYMPHOCYTE IMMUNE GLOBULIN
     Indication: Product used for unknown indication
     Dosage: 25 MG/KG
     Route: 065
  27. TREOSULFAN [Concomitant]
     Active Substance: TREOSULFAN
     Indication: Cord blood transplant therapy
     Dosage: 36 G/M2, UNK
     Route: 065
  28. TREOSULFAN [Concomitant]
     Active Substance: TREOSULFAN
     Indication: Bone marrow conditioning regimen

REACTIONS (11)
  - Acute graft versus host disease in skin [Not Recovered/Not Resolved]
  - Parakeratosis [Recovered/Resolved]
  - Epidermal necrosis [Recovered/Resolved]
  - Interstitial granulomatous dermatitis [Recovered/Resolved]
  - Immune reconstitution inflammatory syndrome [Unknown]
  - Hypertension [Unknown]
  - Adenovirus infection [Recovered/Resolved]
  - Rash [Not Recovered/Not Resolved]
  - Gastroenteritis norovirus [Recovered/Resolved]
  - Drug ineffective [Unknown]
  - Off label use [Unknown]
